FAERS Safety Report 24911861 (Version 1)
Quarter: 2025Q1

REPORT INFORMATION
  Report Type: Spontaneous
  Country: AU (occurrence: AU)
  Receive Date: 20250131
  Receipt Date: 20250131
  Transmission Date: 20250409
  Serious: Yes (Hospitalization, Other)
  Sender: RANBAXY
  Company Number: AU-SUN PHARMACEUTICAL INDUSTRIES LTD-2025R1-491897

PATIENT
  Age: 62 Year
  Sex: Male

DRUGS (7)
  1. OXALIPLATIN [Suspect]
     Active Substance: OXALIPLATIN
     Indication: Gastric cancer
     Route: 042
     Dates: start: 20240205
  2. LEUCOVORIN CALCIUM [Suspect]
     Active Substance: LEUCOVORIN CALCIUM
     Indication: Gastric cancer
     Route: 042
  3. LEUCOVORIN CALCIUM [Suspect]
     Active Substance: LEUCOVORIN CALCIUM
     Route: 042
     Dates: start: 20240205
  4. DOMVANALIMAB [Suspect]
     Active Substance: DOMVANALIMAB
     Indication: Gastric cancer
     Route: 042
     Dates: start: 20240205
  5. FLUOROURACIL [Suspect]
     Active Substance: FLUOROURACIL
     Indication: Gastric cancer
     Route: 042
  6. FLUOROURACIL [Suspect]
     Active Substance: FLUOROURACIL
     Route: 042
  7. ZIMBERELIMAB [Suspect]
     Active Substance: ZIMBERELIMAB
     Indication: Gastric cancer
     Route: 042

REACTIONS (1)
  - Immune-mediated lung disease [Unknown]

NARRATIVE: CASE EVENT DATE: 20240822
